FAERS Safety Report 5988995-6 (Version None)
Quarter: 2008Q4

REPORT INFORMATION
  Report Type: 
  Country: None (occurrence: None)
  Receive Date: 20081210
  Receipt Date: 20081205
  Transmission Date: 20090506
  Serious: Yes (Other)
  Sender: FDA-Public Use
  Company Number: A0759672A

PATIENT
  Age: 50 Year
  Sex: Male
  Weight: 98.6 kg

DRUGS (5)
  1. AVANDIA [Suspect]
     Indication: TYPE 2 DIABETES MELLITUS
     Dosage: 4MG TWICE PER DAY
     Route: 065
     Dates: start: 20000101, end: 20070301
  2. GLUCOPHAGE [Concomitant]
     Dates: start: 19990601
  3. METFORMIN HCL [Concomitant]
     Dates: start: 19990601
  4. LANTUS [Concomitant]
     Dates: start: 20030101, end: 20080501
  5. NOVOLOG [Concomitant]
     Dates: start: 20030101

REACTIONS (1)
  - MYOCARDIAL INFARCTION [None]
